FAERS Safety Report 7592373-6 (Version None)
Quarter: 2011Q3

REPORT INFORMATION
  Report Type: 
  Country: None (occurrence: None)
  Receive Date: 20110706
  Receipt Date: 20110622
  Transmission Date: 20111222
  Serious: Yes (Other)
  Sender: FDA-Public Use
  Company Number: IT-CELGENEUS-083-20785-11062982

PATIENT

DRUGS (3)
  1. MELPHALAN HYDROCHLORIDE [Concomitant]
     Indication: MULTIPLE MYELOMA
     Dosage: .25 MILLIGRAM/KILOGRAM
     Route: 048
  2. THALIDOMIDE [Suspect]
     Indication: MULTIPLE MYELOMA
     Dosage: 100 MILLIGRAM
     Route: 048
  3. PREDNISONE [Concomitant]
     Indication: MULTIPLE MYELOMA
     Dosage: 60 MILLIGRAM/SQ. METER
     Route: 048

REACTIONS (11)
  - INFECTION [None]
  - CONSTIPATION [None]
  - NAUSEA [None]
  - VOMITING [None]
  - BONE MARROW FAILURE [None]
  - NEUTROPENIA [None]
  - GENERAL PHYSICAL CONDITION ABNORMAL [None]
  - DEEP VEIN THROMBOSIS [None]
  - NEUROPATHY PERIPHERAL [None]
  - DISEASE PROGRESSION [None]
  - RENAL IMPAIRMENT [None]
